FAERS Safety Report 4658821-6 (Version None)
Quarter: 2005Q2

REPORT INFORMATION
  Report Type: 
  Country: None (occurrence: None)
  Receive Date: 20050511
  Receipt Date: 20050429
  Transmission Date: 20051028
  Serious: Yes (Other)
  Sender: FDA-Public Use
  Company Number: BR-GLAXOSMITHKLINE-A0556959A

PATIENT
  Age: 42 Year
  Sex: Female
  Weight: 83 kg

DRUGS (3)
  1. NIQUITIN [Suspect]
     Route: 062
     Dates: start: 20050428
  2. LEXOTAN [Concomitant]
  3. FRONTAL [Concomitant]

REACTIONS (5)
  - DEPENDENCE [None]
  - DIZZINESS [None]
  - HYPERHIDROSIS [None]
  - MALAISE [None]
  - NAUSEA [None]
